FAERS Safety Report 9202821 (Version 4)
Quarter: 2013Q4

REPORT INFORMATION
  Report Type: Spontaneous
  Country: US (occurrence: US)
  Receive Date: 20130401
  Receipt Date: 20131016
  Transmission Date: 20140711
  Serious: Yes (Hospitalization, Disabling, Other)
  Sender: FDA-Public Use
  Company Number: US-009507513-1303USA012862

PATIENT
  Sex: Female
  Weight: 81.63 kg

DRUGS (1)
  1. NUVARING [Suspect]
     Indication: CONTRACEPTION
     Dosage: UNK
     Route: 067
     Dates: start: 2006, end: 20070316

REACTIONS (14)
  - Arrhythmia [Unknown]
  - Pulmonary embolism [Unknown]
  - Hypercoagulation [Not Recovered/Not Resolved]
  - Chest pain [Recovered/Resolved]
  - Arthralgia [Recovered/Resolved]
  - Depression [Unknown]
  - Gastrooesophageal reflux disease [Unknown]
  - Irritable bowel syndrome [Unknown]
  - Hypoaesthesia [Unknown]
  - Pulmonary embolism [Unknown]
  - Cor pulmonale chronic [Unknown]
  - Pulmonary infarction [Unknown]
  - Headache [Unknown]
  - Facial pain [Unknown]
